FAERS Safety Report 6652202-1 (Version None)
Quarter: 2010Q1

REPORT INFORMATION
  Report Type: 
  Country: None (occurrence: None)
  Receive Date: 20100325
  Receipt Date: 20100319
  Transmission Date: 20100710
  Serious: Yes (Life-Threatening, Hospitalization, Other)
  Sender: FDA-Public Use
  Company Number: US-ELI_LILLY_AND_COMPANY-US201003005758

PATIENT
  Age: 62 Year
  Sex: Male

DRUGS (3)
  1. XIGRIS [Suspect]
     Indication: BACTERIAL SEPSIS
     Dosage: UNK, OTHER
     Dates: start: 20100301, end: 20100301
  2. HAEMODIALYTICS AND HAEMOFILTRATES [Concomitant]
     Indication: DIALYSIS
     Dates: start: 20100301
  3. OXYGEN [Concomitant]
     Route: 007
     Dates: start: 20100301, end: 20100301

REACTIONS (1)
  - PULMONARY SEPSIS [None]
